FAERS Safety Report 4958595-5 (Version None)
Quarter: 2006Q1

REPORT INFORMATION
  Report Type: 
  Country: None (occurrence: None)
  Receive Date: 20060330
  Receipt Date: 20060320
  Transmission Date: 20060701
  Serious: Yes (Other)
  Sender: FDA-Public Use
  Company Number: US-NOVOPROD-251786

PATIENT
  Age: 36 Year
  Sex: Male
  Weight: 75 kg

DRUGS (3)
  1. NOVOSEVEN [Suspect]
     Indication: HAEMOPHILIA A WITH ANTI FACTOR VIII
     Dosage: UNKNOWN
     Route: 042
     Dates: start: 20060222, end: 20060301
  2. NOVOSEVEN [Suspect]
     Dosage: 208 UG/KG, TID, THREE TIMES A WEEK
     Route: 042
     Dates: start: 20060301, end: 20060317
  3. NOVOSEVEN [Suspect]
     Dosage: 208 UG/KG, QD, THREE TIMES A WEEK
     Route: 042
     Dates: start: 20060317

REACTIONS (2)
  - CATHETER RELATED COMPLICATION [None]
  - VENOUS THROMBOSIS LIMB [None]
